FAERS Safety Report 6462135-1 (Version None)
Quarter: 2009Q4

REPORT INFORMATION
  Report Type: 
  Country: None (occurrence: None)
  Receive Date: 20091130
  Receipt Date: 20091117
  Transmission Date: 20100525
  Serious: No
  Sender: FDA-Public Use
  Company Number: US-BAYER-200916387BCC

PATIENT
  Age: 52 Year
  Sex: Female
  Weight: 98 kg

DRUGS (3)
  1. ALEVE (CAPLET) [Suspect]
     Indication: HEADACHE
     Dosage: TOTAL DAILY DOSE: 220 MG  UNIT DOSE: 220 MG
     Route: 048
     Dates: start: 20091020
  2. ALEVE (CAPLET) [Suspect]
     Dosage: TOTAL DAILY DOSE: 220 MG  UNIT DOSE: 220 MG
     Route: 048
     Dates: start: 20090817, end: 20090817
  3. ANTIBIOTIC INTERTHARM 800 [Concomitant]
     Indication: RASH
     Route: 065

REACTIONS (11)
  - BLISTER [None]
  - DISCOMFORT [None]
  - ERYTHEMA [None]
  - HYPERSENSITIVITY [None]
  - MALAISE [None]
  - OEDEMA PERIPHERAL [None]
  - PAIN [None]
  - RASH ERYTHEMATOUS [None]
  - SCAB [None]
  - SKIN EXFOLIATION [None]
  - VOMITING [None]
